FAERS Safety Report 19574264 (Version 1)
Quarter: 2021Q3

REPORT INFORMATION
  Report Type: Spontaneous
  Country: US (occurrence: US)
  Receive Date: 20210719
  Receipt Date: 20210719
  Transmission Date: 20211014
  Serious: No
  Sender: FDA-Public Use
  Company Number: US-SA-2021SA231602

PATIENT
  Sex: Male

DRUGS (1)
  1. DUPIXENT [Suspect]
     Active Substance: DUPILUMAB
     Indication: DERMATITIS
     Dosage: DOSE?300 MG / 2 ML , QOW
     Route: 058
     Dates: start: 20200418

REACTIONS (5)
  - Product dose omission issue [Unknown]
  - Eczema [Unknown]
  - Pruritus [Unknown]
  - Dry skin [Unknown]
  - Product use in unapproved indication [Unknown]

NARRATIVE: CASE EVENT DATE: 2021
